FAERS Safety Report 10210743 (Version 1)
Quarter: 2014Q2

REPORT INFORMATION
  Report Type: Spontaneous
  Country: US (occurrence: None)
  Receive Date: 20140530
  Receipt Date: 20140530
  Transmission Date: 20141212
  Serious: No
  Sender: FDA-Public Use
  Company Number: None

PATIENT
  Age: 60 Year
  Sex: Male
  Weight: 60.2 kg

DRUGS (1)
  1. ROFLUMILAST [Suspect]
     Indication: CHRONIC OBSTRUCTIVE PULMONARY DISEASE
     Dosage: 500 MCG, EVERY DAY, PO
     Route: 048
     Dates: start: 20140409, end: 20140505

REACTIONS (10)
  - Decreased appetite [None]
  - Anxiety [None]
  - Malaise [None]
  - Muscle spasms [None]
  - Musculoskeletal stiffness [None]
  - Tremor [None]
  - Headache [None]
  - Decreased appetite [None]
  - Insomnia [None]
  - Refusal of treatment by patient [None]
